FAERS Safety Report 20136970 (Version 2)
Quarter: 2022Q1

REPORT INFORMATION
  Report Type: Report from Study
  Country: CN (occurrence: CN)
  Receive Date: 20211201
  Receipt Date: 20220216
  Transmission Date: 20220424
  Serious: Yes (Hospitalization)
  Sender: FDA-Public Use
  Company Number: CN-GILEAD-2021-0558901

PATIENT
  Sex: Male
  Weight: 65 kg

DRUGS (4)
  1. TENOFOVIR ALAFENAMIDE [Suspect]
     Active Substance: TENOFOVIR ALAFENAMIDE
     Indication: Hepatitis B
     Dosage: 1 DOSAGE FORM, QD
     Route: 048
     Dates: start: 20210619
  2. NIFEDIPINE [Concomitant]
     Active Substance: NIFEDIPINE
     Indication: Hypertension
     Route: 048
     Dates: start: 2016
  3. LAMIVUDINE [Concomitant]
     Active Substance: LAMIVUDINE
     Indication: Hepatitis B
  4. TENOFOVIR DISOPROXIL FUMARATE [Concomitant]
     Active Substance: TENOFOVIR DISOPROXIL FUMARATE
     Indication: Hepatitis B

REACTIONS (1)
  - Arteriosclerosis coronary artery [Not Recovered/Not Resolved]

NARRATIVE: CASE EVENT DATE: 20211115
